FAERS Safety Report 5528992-8 (Version None)
Quarter: 2007Q4

REPORT INFORMATION
  Report Type: 
  Country: None (occurrence: None)
  Receive Date: 20071129
  Receipt Date: 20071119
  Transmission Date: 20080405
  Serious: Yes (Hospitalization, Other)
  Sender: FDA-Public Use
  Company Number: US-AMGEN-US248071

PATIENT

DRUGS (15)
  1. ENBREL [Suspect]
     Indication: RHEUMATOID ARTHRITIS
     Route: 064
     Dates: start: 20050808, end: 20050906
  2. ENBREL [Suspect]
     Indication: PSORIASIS
  3. REGLAN [Suspect]
     Route: 065
  4. PRENATAL VITAMINS [Concomitant]
     Route: 064
     Dates: start: 20050922, end: 20060503
  5. CAFFEINE [Concomitant]
     Route: 064
  6. BENADRYL [Concomitant]
     Route: 064
     Dates: start: 20050925, end: 20051006
  7. ASCORBIC ACID [Concomitant]
     Route: 064
     Dates: start: 20060318, end: 20060503
  8. FOLIC ACID [Concomitant]
     Route: 064
     Dates: start: 20060201, end: 20060503
  9. IRON [Concomitant]
     Route: 064
     Dates: start: 20051215, end: 20060503
  10. ANTIBIOTIC NOS [Concomitant]
     Route: 064
     Dates: start: 20060101, end: 20060114
  11. UNSPECIFIED ANESTHETIC [Concomitant]
     Route: 064
  12. TYLENOL [Concomitant]
     Route: 064
     Dates: start: 20051123, end: 20051127
  13. TUMS [Concomitant]
     Route: 064
     Dates: start: 20051007, end: 20060503
  14. BENADRYL [Concomitant]
  15. UNSPECIFIED MEDICATION [Concomitant]
     Route: 064
     Dates: start: 20050918, end: 20050919

REACTIONS (3)
  - CONVULSION [None]
  - GASTROOESOPHAGEAL REFLUX DISEASE [None]
  - NEONATAL RESPIRATORY DISTRESS SYNDROME [None]
